FAERS Safety Report 8150663-2 (Version None)
Quarter: 2012Q1

REPORT INFORMATION
  Report Type: 
  Country: None (occurrence: None)
  Receive Date: 20120220
  Receipt Date: 20120214
  Transmission Date: 20120608
  Serious: Yes (Death, Other)
  Sender: FDA-Public Use
  Company Number: PHHY2012FR013656

PATIENT
  Age: 53 Year
  Sex: Female

DRUGS (3)
  1. SANDOSTATIN [Suspect]
     Indication: HYPOGLYCAEMIA
     Dosage: 100 UG, PER DAY
  2. SANDOSTATIN [Suspect]
     Dosage: 400 UG, DAILY
     Route: 058
  3. SANDOSTATIN [Suspect]
     Dosage: 1000 UG, PER DAY
     Route: 058

REACTIONS (6)
  - DRUG INEFFECTIVE [None]
  - ENDOCRINE NEOPLASM [None]
  - NEOPLASM PROGRESSION [None]
  - METASTASES TO LYMPH NODES [None]
  - HYPOGLYCAEMIA [None]
  - DEATH [None]
